FAERS Safety Report 13334100 (Version 4)
Quarter: 2017Q1

REPORT INFORMATION
  Report Type: Report from Study
  Country: None (occurrence: JP)
  Receive Date: 20170314
  Receipt Date: 20170331
  Transmission Date: 20170428
  Serious: Yes (Hospitalization)
  Sender: FDA-Public Use
  Company Number: JP-ABBVIE-17P-087-1902427-00

PATIENT
  Age: 58 Year
  Sex: Male
  Weight: 58 kg

DRUGS (15)
  1. DUODOPA [Suspect]
     Active Substance: CARBIDOPA\LEVODOPA
     Dosage: MD: 8 ML, CD: 2.9 ML/HR X 16 HR, ED: 1 ML/UNIT X 1
     Route: 050
     Dates: start: 20170220, end: 20170221
  2. ROTIGOTINE [Concomitant]
     Active Substance: ROTIGOTINE
     Indication: PRODUCT USED FOR UNKNOWN INDICATION
     Route: 062
  3. ETIZOLAM [Concomitant]
     Active Substance: ETIZOLAM
     Indication: PRODUCT USED FOR UNKNOWN INDICATION
     Route: 048
  4. DUODOPA [Suspect]
     Active Substance: CARBIDOPA\LEVODOPA
     Dosage: MD: 8 ML, CD: 2.2 ML/HR X 16 HR, ED: 1 ML/UNIT X 1
     Route: 050
     Dates: start: 20170216, end: 20170217
  5. DUODOPA [Suspect]
     Active Substance: CARBIDOPA\LEVODOPA
     Dosage: MD: 6 ML, CD: 3.9 ML/HR X 16 HR, ED: 2 ML/UNIT X 1
     Route: 050
     Dates: start: 20170227, end: 20170227
  6. DUODOPA [Suspect]
     Active Substance: CARBIDOPA\LEVODOPA
     Dosage: MD: 8 ML, CD: 2.4 ML/HR X 16 HR, ED: 1 ML/UNIT X 1
     Route: 050
     Dates: start: 20170217, end: 20170217
  7. DUODOPA [Suspect]
     Active Substance: CARBIDOPA\LEVODOPA
     Dosage: MD: 7 ML, CD: 3.1 ML/HR X 16 HR, ED: 1 ML/UNIT X 1
     Route: 050
     Dates: start: 20170221, end: 20170221
  8. DUODOPA [Suspect]
     Active Substance: CARBIDOPA\LEVODOPA
     Dosage: MD: 6 ML, CD: 3.5 ML/HR X 16 HR, ED: 2 ML/UNIT X 1
     Route: 050
     Dates: start: 20170223, end: 20170223
  9. DUODOPA [Suspect]
     Active Substance: CARBIDOPA\LEVODOPA
     Dosage: MD: 6 ML, CD: 4.4 ML/HR X 16 HR, ED: 3 ML/UNIT X 1
     Route: 050
     Dates: start: 20170303
  10. DUODOPA [Suspect]
     Active Substance: CARBIDOPA\LEVODOPA
     Dosage: MD: 8 ML, CD: 2.7 ML/HR X 16 HR, ED: 1 ML/UNIT X 1
     Route: 050
     Dates: start: 20170217, end: 20170220
  11. DUODOPA [Suspect]
     Active Substance: CARBIDOPA\LEVODOPA
     Dosage: MD: 6 ML, CD: 4.1 ML/HR X 16 HR, ED: 2 ML/UNIT X 1
     Route: 050
     Dates: start: 20170227, end: 20170302
  12. DUODOPA [Suspect]
     Active Substance: CARBIDOPA\LEVODOPA
     Dosage: MD: 6 ML, CD: 3.3 ML/HR X 16 HR, ED: 1.5 ML/UNIT X 1
     Route: 050
     Dates: start: 20170221, end: 20170223
  13. DUODOPA [Suspect]
     Active Substance: CARBIDOPA\LEVODOPA
     Indication: PRODUCT USED FOR UNKNOWN INDICATION
     Dosage: MD: 8 ML, CD: 2 ML/HR X 16 HR
     Route: 050
     Dates: start: 20170216, end: 20170216
  14. NITRAZEPAM [Concomitant]
     Active Substance: NITRAZEPAM
     Indication: PRODUCT USED FOR UNKNOWN INDICATION
     Route: 048
  15. DUODOPA [Suspect]
     Active Substance: CARBIDOPA\LEVODOPA
     Dosage: MD: 6 ML, CD: 3.7 ML/HR X 16 HR, ED: 2 ML/UNIT X 1
     Route: 050
     Dates: start: 20170223, end: 20170227

REACTIONS (3)
  - On and off phenomenon [Recovering/Resolving]
  - Pneumonia aspiration [Recovered/Resolved]
  - Dysphagia [Recovering/Resolving]

NARRATIVE: CASE EVENT DATE: 20170216
